FAERS Safety Report 5360045-4 (Version None)
Quarter: 2007Q2

REPORT INFORMATION
  Report Type: 
  Country: None (occurrence: None)
  Receive Date: 20070618
  Receipt Date: 20070302
  Transmission Date: 20071010
  Serious: No
  Sender: FDA-Public Use
  Company Number: US-ASTRAZENECA-2007UW04032

PATIENT
  Age: 72 Year
  Sex: Female
  Weight: 72.6 kg

DRUGS (3)
  1. FASLODEX [Suspect]
     Indication: BREAST CANCER
     Route: 030
  2. ZOMETA [Concomitant]
  3. M.V.I. [Concomitant]

REACTIONS (1)
  - ALOPECIA [None]
